FAERS Safety Report 5390863-8 (Version None)
Quarter: 2007Q3

REPORT INFORMATION
  Report Type: 
  Country: None (occurrence: None)
  Receive Date: 20070716
  Receipt Date: 20070703
  Transmission Date: 20080115
  Serious: Yes (Hospitalization, Other)
  Sender: FDA-Public Use
  Company Number: GXKR2007TW04606

PATIENT
  Age: 39 Year
  Sex: Female

DRUGS (7)
  1. TRAMADOL HCL [Suspect]
     Indication: ABDOMINAL PAIN
     Dosage: 150 MG, QD, INTRAVENOUS
     Route: 042
  2. MEPERIDINE HYDROCHLORIDE [Suspect]
     Indication: ABDOMINAL PAIN
     Dosage: SEE IMAGE
  3. PANTOPRAZOLE SODIUM [Concomitant]
  4. PREDNISOLONE [Concomitant]
  5. AMOXICILLIN [Concomitant]
  6. CLARITHROMYCIN [Concomitant]
  7. LAMIVUDINE [Concomitant]

REACTIONS (15)
  - ABNORMAL BEHAVIOUR [None]
  - ALTERED STATE OF CONSCIOUSNESS [None]
  - CATATONIA [None]
  - CONFUSIONAL STATE [None]
  - DELIRIUM [None]
  - DEREALISATION [None]
  - DISORIENTATION [None]
  - DISTURBANCE IN ATTENTION [None]
  - DRUG INTERACTION [None]
  - HALLUCINATION, VISUAL [None]
  - IRRITABILITY [None]
  - MUTISM [None]
  - NEGATIVISM [None]
  - RESTLESSNESS [None]
  - STUPOR [None]
